FAERS Safety Report 11898397 (Version 1)
Quarter: 2016Q1

REPORT INFORMATION
  Report Type: Spontaneous
  Country: AU (occurrence: AU)
  Receive Date: 20160108
  Receipt Date: 20160108
  Transmission Date: 20160526
  Serious: Yes (Other)
  Sender: FDA-Public Use
  Company Number: AU-MYLANLABS-2016M1000440

PATIENT

DRUGS (2)
  1. FLUOXETINE [Suspect]
     Active Substance: FLUOXETINE HYDROCHLORIDE
     Indication: PRODUCT USED FOR UNKNOWN INDICATION
     Dosage: 4MG ONCE OR TWICE PER DAY
     Route: 065
  2. ELETRIPTAN [Suspect]
     Active Substance: ELETRIPTAN
     Indication: PRODUCT USED FOR UNKNOWN INDICATION
     Dosage: 4MG ONCE OR TWICE PER DAY
     Route: 065

REACTIONS (2)
  - Cerebral vasoconstriction [Recovered/Resolved]
  - Cerebrovascular accident [Unknown]
